FAERS Safety Report 16712176 (Version 1)
Quarter: 2019Q3

REPORT INFORMATION
  Report Type: Report from Study
  Country: CA (occurrence: CA)
  Receive Date: 20190816
  Receipt Date: 20190816
  Transmission Date: 20191004
  Serious: Yes (Other)
  Sender: FDA-Public Use
  Company Number: PHHY2017CA055876

PATIENT
  Sex: Female

DRUGS (2)
  1. ACLASTA [Suspect]
     Active Substance: ZOLEDRONIC ACID
     Dosage: UNK
     Route: 042
     Dates: start: 20180528
  2. ACLASTA [Suspect]
     Active Substance: ZOLEDRONIC ACID
     Indication: OSTEOPOROSIS
     Dosage: 1 DF, (5 MG/100 ML)
     Route: 042
     Dates: start: 20170410

REACTIONS (10)
  - Spinal pain [Unknown]
  - Osteoporosis [Unknown]
  - Condition aggravated [Unknown]
  - Musculoskeletal discomfort [Unknown]
  - Atrial fibrillation [Unknown]
  - Spinal cord compression [Unknown]
  - Blood pressure increased [Unknown]
  - Gait disturbance [Unknown]
  - Spinal compression fracture [Unknown]
  - Anxiety [Unknown]
